FAERS Safety Report 19166967 (Version 2)
Quarter: 2021Q3

REPORT INFORMATION
  Report Type: Spontaneous
  Country: US (occurrence: US)
  Receive Date: 20210421
  Receipt Date: 20210803
  Transmission Date: 20211014
  Serious: Yes (Other)
  Sender: FDA-Public Use
  Company Number: US-TEVA-2021-US-1903588

PATIENT
  Sex: Male
  Weight: 92.9 kg

DRUGS (2)
  1. VALSARTAN/ HYDROCHLOROTHIAZIDE AUROBINDO [Suspect]
     Active Substance: HYDROCHLOROTHIAZIDE\VALSARTAN
     Indication: HYPERTENSION
     Dosage: VALSARTAN 320 MG/ HYDROCHLOROTHIAZIDE 25 MG
     Route: 048
     Dates: start: 20150210, end: 20181111
  2. VALSARTAN/ HYDROCHLOROTHIAZIDE MYLAN [Suspect]
     Active Substance: HYDROCHLOROTHIAZIDE\VALSARTAN
     Indication: HYPERTENSION
     Dosage: VALSARTAN 320 MG/ HYDROCHLOROTHIAZIDE 25 MG
     Route: 048
     Dates: start: 20130110, end: 20150219

REACTIONS (1)
  - Colorectal cancer [Unknown]
